FAERS Safety Report 4475667-2 (Version None)
Quarter: 2004Q3

REPORT INFORMATION
  Report Type: 
  Country: None (occurrence: None)
  Receive Date: 20040923
  Receipt Date: 20040715
  Transmission Date: 20050211
  Serious: No
  Sender: FDA-Public Use
  Company Number: USA040772724

PATIENT
  Age: 77 Year
  Sex: Male
  Weight: 49 kg

DRUGS (1)
  1. FORTEO [Suspect]
     Dates: start: 20040713

REACTIONS (2)
  - DYSURIA [None]
  - FEELING ABNORMAL [None]
